FAERS Safety Report 7745077-0 (Version None)
Quarter: 2011Q3

REPORT INFORMATION
  Report Type: 
  Country: None (occurrence: None)
  Receive Date: 20110913
  Receipt Date: 20110902
  Transmission Date: 20111222
  Serious: No
  Sender: FDA-Public Use
  Company Number: US-BIOGENIDEC-2011BI034179

PATIENT
  Age: 43 Year
  Sex: Female

DRUGS (3)
  1. PAIN PILLS (NOS) [Concomitant]
     Indication: PAIN
     Dates: start: 20070101
  2. TYSABRI [Suspect]
     Indication: MULTIPLE SCLEROSIS
     Route: 042
     Dates: start: 20080901
  3. OXYCONTIN [Concomitant]
     Indication: PAIN
     Dates: start: 20070101

REACTIONS (5)
  - BALANCE DISORDER [None]
  - CENTRAL NERVOUS SYSTEM LESION [None]
  - HEADACHE [None]
  - FALL [None]
  - PAIN IN EXTREMITY [None]
